FAERS Safety Report 12893474 (Version 1)
Quarter: 2016Q4

REPORT INFORMATION
  Report Type: Spontaneous
  Country: BR (occurrence: BR)
  Receive Date: 20161028
  Receipt Date: 20161028
  Transmission Date: 20170207
  Serious: Yes (Life-Threatening)
  Sender: FDA-Public Use
  Company Number: PHHY2016BR148643

PATIENT
  Sex: Male

DRUGS (1)
  1. SEEBRI BREEZHALER [Suspect]
     Active Substance: GLYCOPYRROLATE
     Indication: PRODUCT USED FOR UNKNOWN INDICATION
     Route: 065

REACTIONS (9)
  - Apparent death [Unknown]
  - Dyspnoea [Unknown]
  - Abdominal pain [Unknown]
  - Fear of death [Unknown]
  - Swollen tongue [Unknown]
  - Pruritus generalised [Unknown]
  - Blood pressure decreased [Unknown]
  - Insomnia [Unknown]
  - Chest pain [Unknown]
